FAERS Safety Report 25484519 (Version 1)
Quarter: 2025Q2

REPORT INFORMATION
  Report Type: Spontaneous
  Country: US (occurrence: None)
  Receive Date: 20250626
  Receipt Date: 20250626
  Transmission Date: 20250716
  Serious: Yes (Death)
  Sender: FDA-CTU
  Company Number: None

PATIENT
  Age: 83 Year
  Sex: Male

DRUGS (1)
  1. LENALIDOMIDE [Suspect]
     Active Substance: LENALIDOMIDE
     Indication: Diffuse large B-cell lymphoma
     Dosage: FREQUENCY : DAILY;?
     Route: 048
     Dates: start: 20240618, end: 20250607

REACTIONS (5)
  - Acute kidney injury [None]
  - Orthostatic hypotension [None]
  - Polyuria [None]
  - Cardiac failure [None]
  - Asthenia [None]

NARRATIVE: CASE EVENT DATE: 20250114
